FAERS Safety Report 9746546 (Version 1)
Quarter: 2013Q4

REPORT INFORMATION
  Report Type: Spontaneous
  Country: US (occurrence: None)
  Receive Date: 20131209
  Receipt Date: 20131209
  Transmission Date: 20140711
  Serious: No
  Sender: FDA-Public Use
  Company Number: None

PATIENT
  Age: 58 Year
  Sex: Female

DRUGS (1)
  1. COMBIPATCH [Suspect]
     Indication: MENOPAUSAL SYMPTOMS
     Dosage: 50/140, BIW, TRANSDERMAL
     Route: 062
     Dates: start: 20130609, end: 20131204

REACTIONS (5)
  - Application site erythema [None]
  - Application site pruritus [None]
  - Application site rash [None]
  - Product adhesion issue [None]
  - Product quality issue [None]
